FAERS Safety Report 8052575-1 (Version None)
Quarter: 2012Q1

REPORT INFORMATION
  Report Type: 
  Country: None (occurrence: None)
  Receive Date: 20120111
  Receipt Date: 20110916
  Transmission Date: 20120608
  Serious: No
  Sender: FDA-Public Use
  Company Number: AECAN201100246

PATIENT
  Age: 58 Year
  Sex: Male

DRUGS (1)
  1. ALBUMIN (HUMAN) [Suspect]
     Indication: PRODUCT USED FOR UNKNOWN INDICATION
     Dosage: 25 GM;QD;IV
     Route: 042
     Dates: start: 20110901, end: 20110903

REACTIONS (8)
  - FLUSHING [None]
  - DYSPNOEA [None]
  - VOMITING [None]
  - NAUSEA [None]
  - HYPERTENSION [None]
  - PYREXIA [None]
  - TACHYCARDIA [None]
  - ANXIETY [None]
